FAERS Safety Report 7635931-2 (Version None)
Quarter: 2011Q3

REPORT INFORMATION
  Report Type: 
  Country: None (occurrence: None)
  Receive Date: 20110719
  Receipt Date: 20110705
  Transmission Date: 20111222
  Serious: Yes (Death)
  Sender: FDA-Public Use
  Company Number: TCI2011A03919

PATIENT

DRUGS (2)
  1. ACTOS [Suspect]
     Dosage: TRANSPLACENTAL
  2. GLIMEPIRIDE [Suspect]
     Dosage: TRANSPLACENTAL
     Route: 064

REACTIONS (4)
  - DIABETES MELLITUS INADEQUATE CONTROL [None]
  - ANENCEPHALY [None]
  - ABORTION [None]
  - MATERNAL EXPOSURE DURING PREGNANCY [None]
